FAERS Safety Report 10769662 (Version 1)
Quarter: 2015Q1

REPORT INFORMATION
  Report Type: Spontaneous
  Country: US (occurrence: None)
  Receive Date: 20150204
  Receipt Date: 20150204
  Transmission Date: 20150721
  Serious: Yes (Death)
  Sender: FDA-Public Use
  Company Number: 2724715

PATIENT
  Age: 32 Year
  Sex: Female

DRUGS (3)
  1. OXYCODONE [Suspect]
     Active Substance: OXYCODONE
     Dates: start: 2013, end: 2013
  2. DIAZEPAM. [Suspect]
     Active Substance: DIAZEPAM
     Dates: start: 2013, end: 2013
  3. MORPHINE SULPHATE [Suspect]
     Active Substance: MORPHINE SULFATE
     Dates: start: 2013, end: 2013

REACTIONS (1)
  - Drug abuse [None]

NARRATIVE: CASE EVENT DATE: 2013
